FAERS Safety Report 7881816-6 (Version None)
Quarter: 2011Q4

REPORT INFORMATION
  Report Type: 
  Country: None (occurrence: None)
  Receive Date: 20111101
  Receipt Date: 20110531
  Transmission Date: 20120403
  Serious: No
  Sender: FDA-Public Use
  Company Number: US-AMGEN-USASP2011028144

PATIENT
  Age: 50 Year
  Sex: Female
  Weight: 32.653 kg

DRUGS (5)
  1. ENBREL [Suspect]
     Indication: PRODUCT USED FOR UNKNOWN INDICATION
     Dosage: 50 MG, QWK
     Route: 058
  2. FOLIC ACID [Concomitant]
     Dosage: 1 MG, UNK
     Route: 048
  3. METHOTREXATE [Concomitant]
  4. NAPROXEN SODIUM [Concomitant]
     Dosage: 220 MG, UNK
     Route: 048
  5. TRAMADOL HCL [Concomitant]
     Dosage: 50 MG, UNK
     Route: 048

REACTIONS (1)
  - NAUSEA [None]
